FAERS Safety Report 7457797-6 (Version None)
Quarter: 2011Q2

REPORT INFORMATION
  Report Type: 
  Country: None (occurrence: None)
  Receive Date: 20110504
  Receipt Date: 20110421
  Transmission Date: 20111010
  Serious: Yes (Hospitalization, Other)
  Sender: FDA-Public Use
  Company Number: PHHY2011DE33644

PATIENT
  Sex: Male
  Weight: 115 kg

DRUGS (12)
  1. ASPIRIN [Concomitant]
     Dosage: 100 MG, PER DAY
     Route: 048
     Dates: start: 20060316
  2. INEGY [Concomitant]
     Dosage: 1 DF, UNK
     Route: 048
     Dates: start: 20090318, end: 20110129
  3. ALISKIREN [Suspect]
     Indication: HYPERTENSION
     Dosage: UNK
     Dates: start: 20081030, end: 20090301
  4. CALCIUM ANTAGONIST [Concomitant]
     Dosage: UNK
     Dates: end: 20090301
  5. ACTOPLUS MET [Concomitant]
     Dosage: 1 DF, BID
     Route: 048
     Dates: start: 20090318, end: 20110129
  6. AZOR [Concomitant]
     Dosage: 1 DF, UNK
     Route: 048
     Dates: start: 20090318, end: 20110129
  7. ENALAPRIL [Concomitant]
     Dosage: 5 MG, PER DAY
     Route: 048
     Dates: start: 20100324
  8. TORSEMIDE [Concomitant]
     Dosage: 10 MG, PER DAY
     Route: 048
     Dates: start: 20100324
  9. ANTIHYPERTENSIVE DRUGS [Concomitant]
     Dosage: UNK
     Dates: end: 20090301
  10. OTHER CHOLESTEROL LOWERING DRUG [Concomitant]
  11. BETA BLOCKING AGENTS [Concomitant]
  12. TROMCARDIN [Concomitant]
     Dosage: UNK
     Dates: start: 20090318, end: 20090408

REACTIONS (9)
  - LEFT VENTRICULAR HYPERTROPHY [None]
  - LEFT VENTRICULAR DYSFUNCTION [None]
  - DYSPNOEA [None]
  - HYPERLIPIDAEMIA [None]
  - OBESITY [None]
  - HYPERTENSIVE CRISIS [None]
  - ATRIOVENTRICULAR BLOCK [None]
  - TYPE 2 DIABETES MELLITUS [None]
  - DIABETIC NEUROPATHY [None]
